FAERS Safety Report 22085014 (Version 1)
Quarter: 2023Q1

REPORT INFORMATION
  Report Type: Spontaneous
  Country: CN (occurrence: CN)
  Receive Date: 20230310
  Receipt Date: 20230310
  Transmission Date: 20230418
  Serious: Yes (Other)
  Sender: FDA-Public Use
  Company Number: CN-PFIZER INC-PV202300044039

PATIENT
  Age: 53 Year
  Sex: Female
  Weight: 52 kg

DRUGS (5)
  1. VORICONAZOLE [Suspect]
     Active Substance: VORICONAZOLE
     Indication: Pneumonia fungal
     Dosage: 300 MG (FIRST 2 DOSES LOADING)
     Route: 041
     Dates: start: 20180726
  2. VORICONAZOLE [Suspect]
     Active Substance: VORICONAZOLE
     Dosage: 200 MG, 2X/DAY (MAINTENANCE)
     Route: 041
  3. CEFOPERAZONE SODIUM\SULBACTAM SODIUM [Concomitant]
     Active Substance: CEFOPERAZONE SODIUM\SULBACTAM SODIUM
     Dosage: 3 G, 2X/DAY
     Route: 041
     Dates: start: 20180718
  4. AMBROXOL [Concomitant]
     Active Substance: AMBROXOL
     Dosage: 15 MG, 3X/DAY
     Route: 041
     Dates: start: 20180718
  5. ACETYLCYSTEINE [Concomitant]
     Active Substance: ACETYLCYSTEINE
     Dosage: 0.6 G, 3X/DAY
     Route: 048
     Dates: start: 20180718

REACTIONS (4)
  - Chloropsia [Recovered/Resolved]
  - Dizziness [Recovered/Resolved]
  - Visual brightness [Recovered/Resolved]
  - Visual impairment [Recovered/Resolved]

NARRATIVE: CASE EVENT DATE: 20180729
